FAERS Safety Report 5065993-0 (Version None)
Quarter: 2006Q3

REPORT INFORMATION
  Report Type: 
  Country: None (occurrence: None)
  Receive Date: 20060731
  Receipt Date: 20060731
  Transmission Date: 20061208
  Serious: Yes (Hospitalization)
  Sender: FDA-Public Use
  Company Number: None

PATIENT
  Sex: Female

DRUGS (6)
  1. VELCADE [Suspect]
     Indication: METASTATIC NEOPLASM
     Dosage: 1.6 MG/M2   WEEKLY   IV DRIP
     Route: 041
     Dates: start: 20060615, end: 20060706
  2. VELCADE [Suspect]
     Indication: SQUAMOUS CELL CARCINOMA
     Dosage: 1.6 MG/M2   WEEKLY   IV DRIP
     Route: 041
     Dates: start: 20060615, end: 20060706
  3. VELCADE [Suspect]
     Indication: TRACHEAL CANCER
     Dosage: 1.6 MG/M2   WEEKLY   IV DRIP
     Route: 041
     Dates: start: 20060615, end: 20060706
  4. TAXOTERE [Suspect]
     Dosage: 40MG/M2  WEEKLY  IV DRIP
     Route: 041
     Dates: start: 20060622, end: 20060706
  5. NEUPOGEN [Concomitant]
  6. AUGMENTIN [Concomitant]

REACTIONS (8)
  - DISCOMFORT [None]
  - ERYTHEMA [None]
  - NEUTROPHIL COUNT DECREASED [None]
  - OEDEMA [None]
  - POST PROCEDURAL DRAINAGE [None]
  - SEROMA [None]
  - TRACHEOSTOMY MALFUNCTION [None]
  - WHITE BLOOD CELL COUNT DECREASED [None]
